FAERS Safety Report 24782443 (Version 1)
Quarter: 2024Q4

REPORT INFORMATION
  Report Type: Spontaneous
  Country: AU (occurrence: AU)
  Receive Date: 20241227
  Receipt Date: 20241227
  Transmission Date: 20250115
  Serious: Yes (Hospitalization)
  Sender: AMGEN
  Company Number: AU-AMGEN-AUSSP2024251339

PATIENT
  Age: 16 Year
  Sex: Male

DRUGS (15)
  1. XGEVA [Suspect]
     Active Substance: DENOSUMAB
     Indication: Hypercalcaemia
     Dosage: 0.35 MILLIGRAM/KILOGRAM
     Route: 065
     Dates: start: 20230703
  2. XGEVA [Suspect]
     Active Substance: DENOSUMAB
     Dosage: 0.47 MILLIGRAM/KILOGRAM
     Route: 065
     Dates: start: 20230713
  3. FILGRASTIM [Suspect]
     Active Substance: FILGRASTIM
     Indication: Neutropenia
     Dosage: 72 MICROGRAM, TWICE A WEEK
     Route: 065
  4. AMOXICILLIN [Concomitant]
     Active Substance: AMOXICILLIN
     Dosage: 250 MILLIGRAM, QD
  5. TOPIRAMATE [Concomitant]
     Active Substance: TOPIRAMATE
     Dosage: 100 MILLIGRAM, BID
  6. VIGABATRIN [Concomitant]
     Active Substance: VIGABATRIN
     Dosage: 500 MILLIGRAM
  7. LEVETIRACETAM [Concomitant]
     Active Substance: LEVETIRACETAM
     Dosage: 500 MILLIGRAM, BID
  8. CLONAZEPAM [Concomitant]
     Active Substance: CLONAZEPAM
     Dosage: 0.1 MILLIGRAM, TID
  9. POTASSIUM CITRATE [Concomitant]
     Active Substance: POTASSIUM CITRATE
     Dosage: 2 GRAM, QID
  10. Immunoglobulin [Concomitant]
     Dosage: 3 GRAM, QWK
  11. UNSPECIFIED INGREDIENT [Concomitant]
     Active Substance: UNSPECIFIED INGREDIENT
     Dosage: UNK UNK, QD
  12. TRANEXAMIC ACID [Concomitant]
     Active Substance: TRANEXAMIC ACID
     Indication: Haemorrhage
     Dosage: UNK UNK, AS NECESSARY
  13. TRANEXAMIC ACID [Concomitant]
     Active Substance: TRANEXAMIC ACID
     Indication: Surgery
  14. MIDAZOLAM [Concomitant]
     Active Substance: MIDAZOLAM
     Indication: Seizure
     Dosage: UNK UNK, AS NECESSARY
  15. ALBUTEROL [Concomitant]
     Active Substance: ALBUTEROL
     Indication: Seizure
     Dosage: 1200 MILLILITER, QD

REACTIONS (13)
  - Hypercalcaemia [Unknown]
  - Status epilepticus [Unknown]
  - Acute kidney injury [Unknown]
  - Pneumonia [Unknown]
  - Dehydration [Unknown]
  - Nephrocalcinosis [Unknown]
  - Polyuria [Unknown]
  - Lethargy [Unknown]
  - Tachycardia [Unknown]
  - Chronic kidney disease [Unknown]
  - Pyrexia [Unknown]
  - Drug ineffective for unapproved indication [Unknown]
  - Off label use [Unknown]

NARRATIVE: CASE EVENT DATE: 20221001
